FAERS Safety Report 8298720-4 (Version None)
Quarter: 2012Q2

REPORT INFORMATION
  Report Type: 
  Country: None (occurrence: None)
  Receive Date: 20120419
  Receipt Date: 20120413
  Transmission Date: 20120825
  Serious: Yes (Life-Threatening, Hospitalization, Other)
  Sender: FDA-Public Use
  Company Number: US-BAYER-2011-002259

PATIENT
  Age: 31 Year
  Sex: Female

DRUGS (14)
  1. ZOMIG [Concomitant]
     Indication: MIGRAINE
  2. YASMIN [Suspect]
     Indication: CONTRACEPTION
     Dosage: UNK
     Dates: start: 20031206, end: 20071001
  3. TOPAMAX [Concomitant]
     Dosage: 100 MG/ DAY
     Dates: start: 20061016
  4. DROSPIRENONE AND ETHINYL ESTRADIOL [Suspect]
     Indication: CONTRACEPTION
     Dosage: UNK
     Dates: start: 20081019, end: 20081106
  5. DOXYCYCLINE [Concomitant]
     Indication: ACNE
  6. YASMIN [Suspect]
     Indication: ACNE
  7. INDERAL [Concomitant]
  8. YASMIN [Suspect]
     Indication: MIGRAINE
  9. YASMIN [Suspect]
     Indication: POLYCYSTIC OVARIES
  10. YAZ [Suspect]
     Indication: POLYCYSTIC OVARIES
  11. MERIDIA [Concomitant]
     Indication: MEDICAL DIET
  12. YAZ [Suspect]
     Indication: ACNE
  13. YAZ [Suspect]
     Indication: MIGRAINE
  14. YAZ [Suspect]
     Indication: CONTRACEPTION
     Dosage: UNK
     Dates: start: 20071113, end: 20080922

REACTIONS (15)
  - CHEST PAIN [None]
  - NAUSEA [None]
  - PAIN [None]
  - DIARRHOEA [None]
  - ANXIETY [None]
  - EMOTIONAL DISTRESS [None]
  - BILE DUCT OBSTRUCTION [None]
  - ABDOMINAL PAIN UPPER [None]
  - GALLBLADDER DISORDER [None]
  - PULMONARY EMBOLISM [None]
  - DYSPNOEA [None]
  - GASTRIC DISORDER [None]
  - HEADACHE [None]
  - MIGRAINE [None]
  - CHOLELITHIASIS [None]
